FAERS Safety Report 9505863 (Version 1)
Quarter: 2013Q1

REPORT INFORMATION
  Report Type: Spontaneous
  Country: US (occurrence: None)
  Receive Date: 20130219
  Receipt Date: 20130219
  Transmission Date: 20140127
  Serious: Yes (Disabling)
  Sender: FDA-Public Use
  Company Number: 1201USA02306

PATIENT
  Age: 69 Year
  Sex: Female

DRUGS (3)
  1. ZOCOR (SIMVASTATIN) TABLET [Suspect]
     Indication: BLOOD CHOLESTEROL
     Dosage: , ORAL
     Route: 048
  2. ZOCOR (SIMVASTATIN) TABLET [Suspect]
     Route: 048
     Dates: start: 1994, end: 20120114
  3. DIOVAN )VALSARTAN) [Concomitant]

REACTIONS (1)
  - Myalgia [None]
